FAERS Safety Report 23062271 (Version 1)
Quarter: 2023Q4

REPORT INFORMATION
  Report Type: Spontaneous
  Country: DE (occurrence: DE)
  Receive Date: 20231013
  Receipt Date: 20231013
  Transmission Date: 20240109
  Serious: Yes (Hospitalization)
  Sender: FDA-Public Use
  Company Number: DE-DCGMA-23201315

PATIENT
  Age: 90 Year
  Sex: Male
  Weight: 84 kg

DRUGS (3)
  1. PREGABALIN [Suspect]
     Active Substance: PREGABALIN
     Indication: Neuralgia
     Route: 048
     Dates: start: 20230515, end: 20230522
  2. ASPIRIN [Concomitant]
     Active Substance: ASPIRIN
     Indication: Product used for unknown indication
     Route: 048
  3. BRIVUDINE [Concomitant]
     Active Substance: BRIVUDINE
     Indication: Herpes zoster
     Route: 048

REACTIONS (5)
  - Delirium [Recovered/Resolved]
  - Hyperkinesia [Recovered/Resolved]
  - Dystonia [Recovered/Resolved]
  - Disturbance in attention [Recovered/Resolved]
  - Disturbance in attention [Recovered/Resolved]

NARRATIVE: CASE EVENT DATE: 20230515
